FAERS Safety Report 20025869 (Version 1)
Quarter: 2021Q4

REPORT INFORMATION
  Report Type: Spontaneous
  Country: FR (occurrence: FR)
  Receive Date: 20211102
  Receipt Date: 20211102
  Transmission Date: 20220303
  Serious: Yes (Other)
  Sender: FDA-Public Use
  Company Number: None

PATIENT
  Age: 78 Year
  Sex: Female

DRUGS (4)
  1. LEVOFLOXACIN [Suspect]
     Active Substance: LEVOFLOXACIN
     Dates: start: 20210807, end: 20210918
  2. AMOXICILLIN [Suspect]
     Active Substance: AMOXICILLIN
     Dates: start: 20210807, end: 20210918
  3. COLCHICINE [Suspect]
     Active Substance: COLCHICINE
     Dates: start: 20210825, end: 20210920
  4. RIFAMPIN [Suspect]
     Active Substance: RIFAMPIN
     Dates: start: 20210807, end: 20210918

REACTIONS (1)
  - Neutropenia [Recovered/Resolved]

NARRATIVE: CASE EVENT DATE: 20210920
